FAERS Safety Report 19651827 (Version 1)
Quarter: 2021Q3

REPORT INFORMATION
  Report Type: Report from Study
  Country: GB (occurrence: GB)
  Receive Date: 20210803
  Receipt Date: 20210803
  Transmission Date: 20211014
  Serious: Yes (Other)
  Sender: FDA-Public Use
  Company Number: GB-SAMSUNG BIOEPIS-SB-2021-18330

PATIENT
  Age: 25 Year
  Sex: Female

DRUGS (1)
  1. IMRALDI [Suspect]
     Active Substance: ADALIMUMAB
     Indication: CROHN^S DISEASE
     Dosage: WEEK 0 (ONLY 80 MG ADMINISTERED)
     Route: 058
     Dates: start: 20210726

REACTIONS (8)
  - Chest discomfort [Unknown]
  - Feeling abnormal [Unknown]
  - Hypotension [Unknown]
  - Malaise [Unknown]
  - Heart rate decreased [Unknown]
  - Muscle rigidity [Unknown]
  - Tremor [Unknown]
  - Dizziness [Unknown]

NARRATIVE: CASE EVENT DATE: 20210726
